FAERS Safety Report 6712647-8 (Version None)
Quarter: 2010Q2

REPORT INFORMATION
  Report Type: 
  Country: None (occurrence: None)
  Receive Date: 20100505
  Receipt Date: 20100505
  Transmission Date: 20101027
  Serious: Yes (Hospitalization)
  Sender: FDA-Public Use
  Company Number: None

PATIENT
  Sex: Female
  Weight: 47.1741 kg

DRUGS (12)
  1. TARCEVA OSI 774, 150 MG [Suspect]
     Indication: NON-SMALL CELL LUNG CANCER
     Dosage: 150 MG, DAILY, ORAL; 150 MG DAILY, ORAL
     Route: 048
     Dates: start: 20090910, end: 20100120
  2. TARCEVA OSI 774, 150 MG [Suspect]
     Indication: NON-SMALL CELL LUNG CANCER
     Dosage: 150 MG, DAILY, ORAL; 150 MG DAILY, ORAL
     Route: 048
     Dates: start: 20100318, end: 20100326
  3. WARFARIN [Concomitant]
  4. OMEPRAZOLE [Concomitant]
  5. METOPROLOL TARTRATE [Concomitant]
  6. SENNA [Concomitant]
  7. CARDIZEM [Concomitant]
  8. ADVAIR DISKUS 100/50 [Concomitant]
  9. ALBUTEROL [Concomitant]
  10. DUONEB [Concomitant]
  11. SINGULAIR [Concomitant]
  12. COMBIVENT [Concomitant]

REACTIONS (2)
  - PNEUMONIA [None]
  - SMALL INTESTINAL OBSTRUCTION [None]
